FAERS Safety Report 9898381 (Version 3)
Quarter: 2014Q3

REPORT INFORMATION
  Report Type: Spontaneous
  Country: US (occurrence: US)
  Receive Date: 20140214
  Receipt Date: 20140703
  Transmission Date: 20150326
  Serious: Yes (Other)
  Sender: FDA-Public Use
  Company Number: US-ELI_LILLY_AND_COMPANY-US_0405103080

PATIENT
  Age: 62 Year
  Sex: Male

DRUGS (2)
  1. RADIATION THERAPY [Concomitant]
     Active Substance: RADIATION THERAPY
     Indication: ADENOCARCINOMA PANCREAS
     Dosage: 50.4 UNK, OTHER
     Dates: start: 20011022, end: 20011129
  2. GEMCITABINE HYDROCHLORIDE. [Suspect]
     Active Substance: GEMCITABINE HYDROCHLORIDE
     Indication: ADENOCARCINOMA PANCREAS
     Dosage: 1000 MG/M2, OTHER
     Route: 042
     Dates: start: 200110

REACTIONS (3)
  - Recall phenomenon [Recovered/Resolved]
  - Diarrhoea [Unknown]
  - Nausea [Unknown]
